FAERS Safety Report 25270952 (Version 1)
Quarter: 2025Q2

REPORT INFORMATION
  Report Type: Spontaneous
  Country: VE (occurrence: VE)
  Receive Date: 20250506
  Receipt Date: 20250506
  Transmission Date: 20250717
  Serious: Yes (Hospitalization)
  Sender: CHEPLAPHARM
  Company Number: None

PATIENT
  Age: 15 Year
  Sex: Male

DRUGS (9)
  1. OLANZAPINE [Interacting]
     Active Substance: OLANZAPINE
  2. CLOZAPINE [Interacting]
     Active Substance: CLOZAPINE
     Dosage: AT BEDTIME, WAS STARTED OFF-LABEL (DAY 1)?DAILY DOSE: 6.25 MILLIGRAM
  3. CLOZAPINE [Interacting]
     Active Substance: CLOZAPINE
     Dosage: SLOWLY INCREASED TO 100 MG IN THREE WEEKS?DAILY DOSE: 100 MILLIGRAM
  4. CLOZAPINE [Interacting]
     Active Substance: CLOZAPINE
  5. QUETIAPINE [Interacting]
     Active Substance: QUETIAPINE
     Dosage: 100 MG TWICE A DAY?DAILY DOSE: 200 MILLIGRAM
  6. VALPROATE SODIUM [Interacting]
     Active Substance: VALPROATE SODIUM
  7. LAMOTRIGINE [Suspect]
     Active Substance: LAMOTRIGINE
  8. DIAZEPAM [Suspect]
     Active Substance: DIAZEPAM
  9. PROPRANOLOL [Concomitant]
     Active Substance: PROPRANOLOL HYDROCHLORIDE
     Indication: Akathisia

REACTIONS (5)
  - Drug interaction [Unknown]
  - Necrotising colitis [Unknown]
  - Gastrointestinal obstruction [Unknown]
  - Sepsis [Unknown]
  - Renal failure [Unknown]
